FAERS Safety Report 4902423-0 (Version None)
Quarter: 2006Q1

REPORT INFORMATION
  Report Type: 
  Country: None (occurrence: None)
  Receive Date: 20060207
  Receipt Date: 20060127
  Transmission Date: 20060701
  Serious: Yes (Hospitalization)
  Sender: FDA-Public Use
  Company Number: BE-AVENTIS-200610836GDDC

PATIENT
  Age: 50 Year
  Sex: Female

DRUGS (3)
  1. KETEK [Suspect]
     Indication: PHARYNGITIS
     Route: 048
     Dates: start: 20060116, end: 20060116
  2. CORTICOSTEROIDS [Concomitant]
     Indication: MYASTHENIC SYNDROME
     Dosage: DOSE: UNK
  3. MESTINON [Concomitant]
     Indication: MYASTHENIC SYNDROME

REACTIONS (3)
  - PARESIS [None]
  - QUADRIPARESIS [None]
  - RESPIRATORY FAILURE [None]
